FAERS Safety Report 18398782 (Version 2)
Quarter: 2020Q4

REPORT INFORMATION
  Report Type: Spontaneous
  Country: US (occurrence: US)
  Receive Date: 20201019
  Receipt Date: 20201224
  Transmission Date: 20210114
  Serious: Yes (Other)
  Sender: FDA-Public Use
  Company Number: US-BAUSCH-BL-2020-030175

PATIENT
  Sex: Male

DRUGS (2)
  1. DIAZEPAM RECTAL GEL [Suspect]
     Active Substance: DIAZEPAM
     Dosage: PHYSICIAN INCREASED THE DOSE FROM 10 MG TO 17.5 MG
     Route: 065
  2. DIAZEPAM RECTAL GEL [Suspect]
     Active Substance: DIAZEPAM
     Indication: SEIZURE
     Dosage: 10MG/2 SYSTEMS
     Route: 065

REACTIONS (1)
  - Therapeutic product effect decreased [Unknown]
